FAERS Safety Report 5531068-7 (Version None)
Quarter: 2007Q4

REPORT INFORMATION
  Report Type: 
  Country: None (occurrence: None)
  Receive Date: 20071130
  Receipt Date: 20071123
  Transmission Date: 20080405
  Serious: Yes (Hospitalization)
  Sender: FDA-Public Use
  Company Number: NL-BOEHRINGER INGELHEIM PHARMACEUTICALS, INC.-2007-NL-00508NL

PATIENT
  Sex: Female

DRUGS (1)
  1. PERSANTINE [Suspect]
     Indication: TRANSIENT ISCHAEMIC ATTACK

REACTIONS (1)
  - OEDEMA PERIPHERAL [None]
